FAERS Safety Report 5697709-9 (Version None)
Quarter: 2008Q2

REPORT INFORMATION
  Report Type: 
  Country: None (occurrence: None)
  Receive Date: 20080408
  Receipt Date: 20080402
  Transmission Date: 20081010
  Serious: Yes (Hospitalization)
  Sender: FDA-Public Use
  Company Number: B0503238A

PATIENT
  Age: 5 Year
  Sex: Female

DRUGS (1)
  1. ZOVIRAX [Suspect]
     Indication: VARICELLA
     Route: 042
     Dates: start: 20071105, end: 20071109

REACTIONS (4)
  - EXTRAVASATION [None]
  - IMPAIRED HEALING [None]
  - INJECTION SITE NECROSIS [None]
  - VENOUS THROMBOSIS [None]
